FAERS Safety Report 8611439-2 (Version None)
Quarter: 2012Q3

REPORT INFORMATION
  Report Type: 
  Country: None (occurrence: None)
  Receive Date: 20120822
  Receipt Date: 20120821
  Transmission Date: 20120928
  Serious: Yes (Hospitalization)
  Sender: FDA-Public Use
  Company Number: TR-JNJFOC-20120703457

PATIENT
  Sex: Male
  Weight: 113 kg

DRUGS (1)
  1. USTEKINIMAB [Suspect]
     Indication: PSORIASIS
     Dosage: DOSAGE WAS TEMPORARILY STOPPED
     Route: 058
     Dates: start: 20100929, end: 20120713

REACTIONS (2)
  - PNEUMONIA [None]
  - PSORIASIS [None]
